FAERS Safety Report 6521525-9 (Version None)
Quarter: 2009Q4

REPORT INFORMATION
  Report Type: 
  Country: None (occurrence: None)
  Receive Date: 20091214
  Receipt Date: 20090716
  Transmission Date: 20100525
  Serious: Yes (Hospitalization)
  Sender: FDA-Public Use
  Company Number: 644393

PATIENT
  Age: 60 Year
  Sex: Male

DRUGS (10)
  1. PEGASYS [Suspect]
     Indication: HEPATITIS C
     Dosage: 180 UG 1 PER WEEK OTHER
     Dates: start: 20070701, end: 20090501
  2. PEGASYS [Suspect]
     Indication: HIV INFECTION
     Dosage: 180 UG 1 PER WEEK OTHER
     Dates: start: 20070701, end: 20090501
  3. RIBAVIRIN [Suspect]
     Indication: HEPATITIS C
     Dates: start: 20070701, end: 20090501
  4. RIBAVIRIN [Suspect]
     Indication: HIV INFECTION
     Dates: start: 20070701, end: 20090501
  5. DARVOCET (DEXTROPROPOXYPHENE/PARACETAMOL) [Concomitant]
  6. MARINOL (*ALGAE/*ALLOPURINOL/*CALCIUM PHOSPHATE, MONOBASIC/*DROABINNOL [Concomitant]
  7. PANCREASE (*PANCREATIN/*PANCRELIPASE) [Concomitant]
  8. ZERIT [Concomitant]
  9. DIDANOSINE [Concomitant]
  10. KALETRA [Concomitant]

REACTIONS (7)
  - BRONCHITIS [None]
  - DECREASED APPETITE [None]
  - FATIGUE [None]
  - LYMPHADENOPATHY [None]
  - PNEUMONIA [None]
  - VIRAL LOAD INCREASED [None]
  - WEIGHT DECREASED [None]
